FAERS Safety Report 5558494-4 (Version None)
Quarter: 2007Q4

REPORT INFORMATION
  Report Type: 
  Country: None (occurrence: None)
  Receive Date: 20071214
  Receipt Date: 20070917
  Transmission Date: 20080405
  Serious: No
  Sender: FDA-Public Use
  Company Number: US-ABBOTT-07P-163-0376358-00

PATIENT
  Sex: Female
  Weight: 100 kg

DRUGS (11)
  1. HUMIRA [Suspect]
     Indication: CROHN'S DISEASE
     Route: 058
     Dates: start: 20070713, end: 20070713
  2. HUMIRA [Suspect]
     Route: 058
     Dates: start: 20070727, end: 20070727
  3. HUMIRA [Suspect]
     Dates: start: 20070810
  4. RAMIPRIL [Concomitant]
     Indication: HYPERTENSION
     Route: 048
  5. AZATHIOPRINE [Concomitant]
     Indication: CROHN'S DISEASE
     Route: 048
  6. SPIRONOLACTONE [Concomitant]
     Indication: HYPERTENSION
     Route: 048
  7. SERTRALINE [Concomitant]
     Indication: STRESS
     Route: 048
  8. MESALAMINE [Concomitant]
     Indication: CROHN'S DISEASE
     Dosage: 400MG PER TABLET, 12 TABLETS A DAY
     Route: 048
  9. MESALAMINE [Concomitant]
     Route: 054
  10. FISH OIL [Concomitant]
     Indication: DRUG USE FOR UNKNOWN INDICATION
     Route: 048
  11. CALCIUM [Concomitant]
     Indication: DRUG USE FOR UNKNOWN INDICATION

REACTIONS (7)
  - ARTHRALGIA [None]
  - ASTHENIA [None]
  - INJECTION SITE IRRITATION [None]
  - INJECTION SITE NODULE [None]
  - INJECTION SITE PAIN [None]
  - INJECTION SITE PRURITUS [None]
  - OEDEMA PERIPHERAL [None]
